FAERS Safety Report 10510419 (Version 1)
Quarter: 2014Q4

REPORT INFORMATION
  Report Type: Spontaneous
  Country: US (occurrence: None)
  Receive Date: 20141008
  Receipt Date: 20141008
  Transmission Date: 20150528
  Serious: Yes (Other)
  Sender: FDA-Public Use
  Company Number: 2014-20445

PATIENT
  Age: 81 Year
  Sex: Female
  Weight: 60.3 kg

DRUGS (2)
  1. PRESERVISION AREDS (ASCORBIC ACID, BETACAROTENE, CUPRIC OXIDE, TOCOPHERYL ACETATE, ZINC OXIDE) [Concomitant]
  2. EYLEA [Suspect]
     Active Substance: AFLIBERCEPT
     Indication: MACULAR DEGENERATION
     Dosage: EVERY SIX WEEKS
     Route: 031
     Dates: start: 201312

REACTIONS (1)
  - Non-Hodgkin^s lymphoma recurrent [None]

NARRATIVE: CASE EVENT DATE: 201409
